FAERS Safety Report 7457518-7 (Version None)
Quarter: 2011Q2

REPORT INFORMATION
  Report Type: 
  Country: None (occurrence: None)
  Receive Date: 20110504
  Receipt Date: 20110423
  Transmission Date: 20111010
  Serious: Yes (Other)
  Sender: FDA-Public Use
  Company Number: TW-BRISTOL-MYERS SQUIBB COMPANY-15703754

PATIENT
  Age: 30 Year
  Sex: Female

DRUGS (1)
  1. TRAZODONE HCL [Suspect]

REACTIONS (3)
  - OVERDOSE [None]
  - ELECTROCARDIOGRAM QT PROLONGED [None]
  - BRADYCARDIA [None]
